FAERS Safety Report 9290483 (Version 1)
Quarter: 2013Q2

REPORT INFORMATION
  Report Type: Spontaneous
  Country: US (occurrence: US)
  Receive Date: 20130515
  Receipt Date: 20130515
  Transmission Date: 20140414
  Serious: No
  Sender: FDA-Public Use
  Company Number: US-OPTIMER PHARMACEUTICALS, INC.-20120063

PATIENT
  Age: 69 Year
  Sex: Male
  Weight: 95.24 kg

DRUGS (8)
  1. DIFICID [Suspect]
     Indication: CLOSTRIDIAL INFECTION
     Dosage: 200 MG, BID
     Route: 048
     Dates: start: 20120320, end: 20120329
  2. METAMUCIL [Concomitant]
     Dosage: UNK
  3. WELLBUTRIN [Concomitant]
     Indication: DEPRESSION
     Dosage: UNK, BID
     Route: 048
  4. SYNTHROID [Concomitant]
     Indication: HYPOTHYROIDISM
     Dosage: UNK, QD
     Route: 048
  5. TOPROL [Concomitant]
     Indication: HYPERTENSION
     Dosage: 100 MG, UNK
     Route: 048
  6. LIPITOR [Concomitant]
     Indication: BLOOD CHOLESTEROL INCREASED
     Dosage: UNK, QD
     Route: 048
  7. ALTACE [Concomitant]
     Indication: BLOOD PRESSURE INCREASED
     Dosage: UNK
     Route: 048
  8. ASPIRIN [Concomitant]
     Dosage: UNK, QD
     Route: 048

REACTIONS (1)
  - Constipation [Not Recovered/Not Resolved]
